FAERS Safety Report 10524595 (Version 1)
Quarter: 2014Q4

REPORT INFORMATION
  Report Type: Spontaneous
  Country: US (occurrence: None)
  Receive Date: 20141015
  Receipt Date: 20141015
  Transmission Date: 20150528
  Serious: Yes (Hospitalization)
  Sender: FDA-Public Use
  Company Number: None

PATIENT
  Age: 61 Year
  Sex: Male
  Weight: 51.4 kg

DRUGS (20)
  1. CITALOPRAM [Concomitant]
     Active Substance: CITALOPRAM HYDROBROMIDE
  2. PRILOSEC [Concomitant]
     Active Substance: OMEPRAZOLE MAGNESIUM
  3. DESYRELL [Concomitant]
  4. VITAMIN D [Concomitant]
     Active Substance: CHOLECALCIFEROL
  5. ENULOSE [Concomitant]
     Active Substance: LACTULOSE
  6. DOLOPHINE [Concomitant]
     Active Substance: METHADONE HYDROCHLORIDE
  7. SOFOSBUVIR 400MG [Suspect]
     Active Substance: SOFOSBUVIR
     Indication: HEPATITIS C
     Route: 048
     Dates: start: 20140520
  8. TYLENOL [Concomitant]
     Active Substance: ACETAMINOPHEN
  9. AMLODIPINE [Concomitant]
     Active Substance: AMLODIPINE BESYLATE
  10. SPOGEN [Concomitant]
  11. MULTIVITAMIN [Concomitant]
     Active Substance: VITAMINS
  12. ZOFRAN [Concomitant]
     Active Substance: ONDANSETRON HYDROCHLORIDE
  13. RAPAMUNE [Concomitant]
     Active Substance: SIROLIMUS
  14. TACROLIMUS. [Concomitant]
     Active Substance: TACROLIMUS
  15. SIMEPREVIR 150MG JANSSEN [Suspect]
     Active Substance: SIMEPREVIR
     Indication: HEPATITIS C
     Route: 048
     Dates: start: 20140531
  16. ATOVAQUONE. [Concomitant]
     Active Substance: ATOVAQUONE
  17. LOPRESSOR [Concomitant]
     Active Substance: METOPROLOL TARTRATE
  18. MYFORTIC [Concomitant]
     Active Substance: MYCOPHENOLATE SODIUM
  19. ACTIGALL [Concomitant]
     Active Substance: URSODIOL
  20. NEURONTIN [Concomitant]
     Active Substance: GABAPENTIN

REACTIONS (4)
  - Liver disorder [None]
  - Arteriovenous fistula [None]
  - Vascular injury [None]
  - Hepatic encephalopathy [None]

NARRATIVE: CASE EVENT DATE: 20140524
